FAERS Safety Report 8813141 (Version 1)
Quarter: 2012Q4

REPORT INFORMATION
  Report Type: 
  Country: DE (occurrence: DE)
  Receive Date: 20120927
  Receipt Date: 20120927
  Transmission Date: 20130627
  Serious: Yes (Death, Other)
  Sender: FDA-Public Use
  Company Number: DE-MYLANLABS-2012S1019179

PATIENT
  Sex: Female
  Weight: 3.29 kg

DRUGS (3)
  1. SERTRALINE [Suspect]
     Dosage: 25 [mg/d ]
     Route: 064
  2. FOLIO FORTE [Concomitant]
     Indication: PROPHYLAXIS OF NEURAL TUBE DEFECT
     Route: 064
     Dates: start: 20110410
  3. CYTOTEC [Concomitant]
     Indication: LABOUR INDUCTION
     Route: 064
     Dates: start: 20120112, end: 20120112

REACTIONS (2)
  - Exposure during pregnancy [Unknown]
  - Stillbirth [Fatal]
